FAERS Safety Report 19913725 (Version 3)
Quarter: 2021Q4

REPORT INFORMATION
  Report Type: Spontaneous
  Country: US (occurrence: US)
  Receive Date: 20211004
  Receipt Date: 20211118
  Transmission Date: 20220303
  Serious: Yes (Other)
  Sender: FDA-Public Use
  Company Number: US-SA-SAC20210930000567

PATIENT
  Age: 30 Year
  Sex: Male

DRUGS (31)
  1. CEREZYME [Suspect]
     Active Substance: IMIGLUCERASE
     Indication: Gaucher^s disease
     Dosage: 400 IU, QW
     Route: 042
     Dates: start: 20201221
  2. CEREZYME [Suspect]
     Active Substance: IMIGLUCERASE
     Dosage: 400 IU, (2800 UNITS IV + 3200 UNITS ) QOW
     Route: 042
     Dates: start: 20201221
  3. BENZONATATE [Concomitant]
     Active Substance: BENZONATATE
  4. BACLOFEN [Concomitant]
     Active Substance: BACLOFEN
  5. CYCLOBENZAPRINE [Concomitant]
     Active Substance: CYCLOBENZAPRINE
  6. ACETAMINOPHEN [Concomitant]
     Active Substance: ACETAMINOPHEN
  7. DIPHENHYDRAMINE [Concomitant]
     Active Substance: DIPHENHYDRAMINE
  8. LIDOCAINE [Concomitant]
     Active Substance: LIDOCAINE
  9. PRILOCAINE [Concomitant]
     Active Substance: PRILOCAINE
  10. STERILE WATER [Concomitant]
     Active Substance: WATER
  11. EPINEPHRINE [Concomitant]
     Active Substance: EPINEPHRINE
  12. SOLU-CORTEF [Concomitant]
     Active Substance: HYDROCORTISONE SODIUM SUCCINATE
  13. LUNESTA [Concomitant]
     Active Substance: ESZOPICLONE
  14. AMITRIPTYLINE [Concomitant]
     Active Substance: AMITRIPTYLINE
  15. KEPPRA [Concomitant]
     Active Substance: LEVETIRACETAM
  16. DICYCLOMINE [Concomitant]
     Active Substance: DICYCLOMINE HYDROCHLORIDE
  17. ACZONE [DAPSONE] [Concomitant]
  18. ADVAIR HFA [Concomitant]
     Active Substance: FLUTICASONE PROPIONATE\SALMETEROL XINAFOATE
  19. METOPROLOL SUCCINATE [Concomitant]
     Active Substance: METOPROLOL SUCCINATE
  20. IBUPROFEN [Concomitant]
     Active Substance: IBUPROFEN
  21. FLUTICASONE PROPIONATE [Concomitant]
     Active Substance: FLUTICASONE PROPIONATE
  22. GABAPENTIN [Concomitant]
     Active Substance: GABAPENTIN
  23. LACTOSE [Concomitant]
     Active Substance: LACTOSE
  24. MORPHINE [Concomitant]
     Active Substance: MORPHINE
  25. HYDROCODONE [Concomitant]
     Active Substance: HYDROCODONE
  26. FENTANYL [Concomitant]
     Active Substance: FENTANYL
  27. DILANTIN [Concomitant]
     Active Substance: PHENYTOIN
  28. ACRIVASTINE [Concomitant]
     Active Substance: ACRIVASTINE
  29. SODIUM CHLORIDE [Concomitant]
     Active Substance: SODIUM CHLORIDE
  30. PENICILLIN G [Concomitant]
     Active Substance: PENICILLIN G
  31. ACETAMINOPHEN [Concomitant]
     Active Substance: ACETAMINOPHEN

REACTIONS (3)
  - Nephrolithiasis [Unknown]
  - Eye irritation [Unknown]
  - Product use issue [Unknown]

NARRATIVE: CASE EVENT DATE: 20201221
